FAERS Safety Report 18453214 (Version 1)
Quarter: 2020Q4

REPORT INFORMATION
  Report Type: Spontaneous
  Country: GB (occurrence: GB)
  Receive Date: 20201102
  Receipt Date: 20201102
  Transmission Date: 20210114
  Serious: Yes (Hospitalization)
  Sender: FDA-Public Use
  Company Number: GB-TEVA-2020-GB-1843210

PATIENT
  Age: 62 Year
  Sex: Male

DRUGS (2)
  1. TRIMETHOPRIM. [Concomitant]
     Active Substance: TRIMETHOPRIM
     Indication: BLADDER DISORDER
     Dosage: 100 MILLIGRAM DAILY; NIGHT. TAKES OCCASIONALLY TO MANAGE BLADDER ISSUES AS HE SELF CATHETERISES.
     Route: 048
  2. QUININE SULFATE. [Suspect]
     Active Substance: QUININE SULFATE
     Indication: MUSCLE SPASMS
     Dosage: 200 MILLIGRAM DAILY; NIGHT
     Route: 048
     Dates: start: 20200909, end: 20200910

REACTIONS (5)
  - Vomiting projectile [Recovered/Resolved]
  - Gastroenteritis [Recovered/Resolved]
  - Diarrhoea [Recovered/Resolved]
  - Dehydration [Recovered/Resolved]
  - Abdominal pain [Recovered/Resolved]

NARRATIVE: CASE EVENT DATE: 20200911
